FAERS Safety Report 23571910 (Version 1)
Quarter: 2024Q1

REPORT INFORMATION
  Report Type: Spontaneous
  Country: US (occurrence: US)
  Receive Date: 20240227
  Receipt Date: 20240227
  Transmission Date: 20240410
  Serious: No
  Sender: FDA-Public Use
  Company Number: US-BAYER-2024A027293

PATIENT

DRUGS (1)
  1. ASTEPRO [Suspect]
     Active Substance: AZELASTINE HYDROCHLORIDE
     Dosage: NOT AVAILABLE

REACTIONS (6)
  - Gait disturbance [Unknown]
  - Fall [Unknown]
  - Peripheral swelling [Unknown]
  - Paraesthesia [Unknown]
  - Muscular weakness [Unknown]
  - Fatigue [Unknown]
